FAERS Safety Report 12401848 (Version 1)
Quarter: 2016Q2

REPORT INFORMATION
  Report Type: Spontaneous
  Country: US (occurrence: US)
  Receive Date: 20160525
  Receipt Date: 20160525
  Transmission Date: 20160815
  Serious: No
  Sender: FDA-Public Use
  Company Number: US-PFIZER INC-2016246109

PATIENT

DRUGS (4)
  1. LESCOL [Suspect]
     Active Substance: FLUVASTATIN SODIUM
  2. NAPROSYN [Suspect]
     Active Substance: NAPROXEN
  3. PROCARDIA [Suspect]
     Active Substance: NIFEDIPINE
  4. CLINORIL [Suspect]
     Active Substance: SULINDAC

REACTIONS (1)
  - Drug hypersensitivity [Unknown]
